FAERS Safety Report 12114087 (Version 1)
Quarter: 2016Q1

REPORT INFORMATION
  Report Type: Spontaneous
  Country: US (occurrence: None)
  Receive Date: 20160224
  Receipt Date: 20160224
  Transmission Date: 20160526
  Serious: Yes (Disabling)
  Sender: FDA-Public Use
  Company Number: None

PATIENT
  Age: 40 Year
  Sex: Female
  Weight: 62.6 kg

DRUGS (3)
  1. MIRENA [Suspect]
     Active Substance: LEVONORGESTREL
  2. IRON [Concomitant]
     Active Substance: IRON
  3. VITAMIN [Concomitant]
     Active Substance: VITAMINS

REACTIONS (7)
  - Nausea [None]
  - Complication of device removal [None]
  - Headache [None]
  - Dizziness [None]
  - Impaired work ability [None]
  - Blood pressure increased [None]
  - Pain [None]

NARRATIVE: CASE EVENT DATE: 20160217
